FAERS Safety Report 13288824 (Version 7)
Quarter: 2018Q1

REPORT INFORMATION
  Report Type: Spontaneous
  Country: US (occurrence: US)
  Receive Date: 20170302
  Receipt Date: 20180328
  Transmission Date: 20180508
  Serious: Yes (Hospitalization, Other)
  Sender: FDA-Public Use
  Company Number: US-PFIZER INC-2017088033

PATIENT
  Age: 75 Year
  Sex: Female

DRUGS (1)
  1. XELJANZ XR [Suspect]
     Active Substance: TOFACITINIB CITRATE
     Dosage: 11 MG, UNK
     Dates: start: 201702

REACTIONS (9)
  - Malaise [Unknown]
  - Contusion [Unknown]
  - Bronchitis [Recovered/Resolved]
  - Skin atrophy [Unknown]
  - Influenza [Recovered/Resolved]
  - Skin infection [Recovered/Resolved]
  - Viral infection [Unknown]
  - Arrhythmia [Unknown]
  - Lung disorder [Unknown]

NARRATIVE: CASE EVENT DATE: 201702
